FAERS Safety Report 10064958 (Version 1)
Quarter: 2014Q2

REPORT INFORMATION
  Report Type: Spontaneous
  Country: US (occurrence: US)
  Receive Date: 20140408
  Receipt Date: 20140408
  Transmission Date: 20141212
  Serious: Yes (Other)
  Sender: FDA-Public Use
  Company Number: US-SA-2014SA039891

PATIENT
  Age: 65 Year
  Sex: Female

DRUGS (1)
  1. LANTUS [Suspect]
     Indication: DIABETES MELLITUS
     Dosage: DOSE:100 UNITS AT NIGHT AND 40 UNITS IN MORNING
     Route: 065
     Dates: start: 2009

REACTIONS (5)
  - Cardiac disorder [Not Recovered/Not Resolved]
  - Stent placement [Unknown]
  - Renal impairment [Not Recovered/Not Resolved]
  - Peripheral vascular disorder [Not Recovered/Not Resolved]
  - Inappropriate schedule of drug administration [Unknown]
